FAERS Safety Report 14443413 (Version 2)
Quarter: 2018Q3

REPORT INFORMATION
  Report Type: Spontaneous
  Country: US (occurrence: US)
  Receive Date: 20180125
  Receipt Date: 20180724
  Transmission Date: 20181010
  Serious: Yes (Other)
  Sender: FDA-Public Use
  Company Number: US-AMGEN-USASP2017136612

PATIENT
  Age: 68 Year
  Sex: Female

DRUGS (1)
  1. KYPROLIS [Suspect]
     Active Substance: CARFILZOMIB
     Indication: PLASMA CELL MYELOMA
     Dosage: UNK
     Route: 065
     Dates: start: 201608, end: 201609

REACTIONS (3)
  - Pulmonary hypertension [Unknown]
  - Plasma cell myeloma [Unknown]
  - Unevaluable event [Unknown]

NARRATIVE: CASE EVENT DATE: 2016
